FAERS Safety Report 8611890-0 (Version None)
Quarter: 2012Q3

REPORT INFORMATION
  Report Type: 
  Country: None (occurrence: None)
  Receive Date: 20120822
  Receipt Date: 20120816
  Transmission Date: 20120928
  Serious: Yes (Life-Threatening, Other)
  Sender: FDA-Public Use
  Company Number: FR-BRISTOL-MYERS SQUIBB COMPANY-16687923

PATIENT
  Age: 84 Year
  Sex: Female

DRUGS (10)
  1. DIGOXIN [Concomitant]
     Indication: HYPERTENSION
     Dosage: ONE-HALF TABLET DAILY ORALLY
     Route: 048
  2. HYPERIUM [Concomitant]
     Indication: HYPERTENSION
     Dosage: 1 DF = 1 MG, ONE TABLET DAILY
     Route: 048
  3. MICARDIS [Concomitant]
     Indication: HYPERTENSION
     Dosage: MICARDIS (TELMISARTAN) 40 MG, ONE TABLET DAILY
     Route: 048
  4. AMLODIPINE BESYLATE [Concomitant]
     Indication: HYPERTENSION
     Dosage: AMLOR (AMLODIPINE) 5 MG, ONE CAPSULE DAILY
     Route: 048
  5. PRAVASTATIN [Concomitant]
     Indication: DYSLIPIDAEMIA
     Dosage: VASTEN (PRAVASTATIN) SCORED TABLET 20 MG, ONE HALF TABLET DAILY
     Route: 048
  6. PRADAXA [Suspect]
     Indication: ATRIAL FIBRILLATION
     Route: 048
     Dates: start: 20120501, end: 20120502
  7. COUMADIN [Suspect]
     Indication: ATRIAL FIBRILLATION
     Dosage: 1 DF =  TWO SCORED TABLETS DAILY
     Route: 048
     Dates: start: 20120416, end: 20120430
  8. LEXOMIL [Concomitant]
     Dosage: LEXOMIL ROCHE COMPRIM?? BAGUETTE (BROMAZEPAM) QUADRISECTED TABLET, ONE-QUARTER TABLET DAILY
     Route: 048
  9. POLYETHYLENE GLYCOL [Concomitant]
     Indication: CONSTIPATION
     Route: 048
  10. LANSOPRAZOLE [Concomitant]
     Dosage: OGASTORO (LANSOPRAZOLE) 15 MG, ONE ORODISPERSIBLE TABLET DAILY ORALLY,
     Route: 048

REACTIONS (4)
  - HAEMOGLOBIN DECREASED [None]
  - RED BLOOD CELL COUNT DECREASED [None]
  - INTERNATIONAL NORMALISED RATIO ABNORMAL [None]
  - RECTAL HAEMORRHAGE [None]
